FAERS Safety Report 22518962 (Version 1)
Quarter: 2023Q2

REPORT INFORMATION
  Report Type: Report from Study
  Country: AR (occurrence: AR)
  Receive Date: 20230605
  Receipt Date: 20230605
  Transmission Date: 20230721
  Serious: Yes (Hospitalization, Other)
  Sender: FDA-Public Use
  Company Number: AR-ABBVIE-5275866

PATIENT
  Age: 55 Year
  Sex: Female

DRUGS (1)
  1. HUMIRA [Suspect]
     Active Substance: ADALIMUMAB
     Indication: Rheumatoid arthritis
     Route: 058
     Dates: start: 20220420, end: 20230503

REACTIONS (4)
  - Venous thrombosis limb [Unknown]
  - Tendon rupture [Unknown]
  - Gait disturbance [Unknown]
  - Inflammation [Unknown]

NARRATIVE: CASE EVENT DATE: 20230302
